FAERS Safety Report 10240759 (Version 1)
Quarter: 2014Q2

REPORT INFORMATION
  Report Type: Spontaneous
  Country: ES (occurrence: ES)
  Receive Date: 20140617
  Receipt Date: 20140617
  Transmission Date: 20141212
  Serious: Yes (Other)
  Sender: FDA-Public Use
  Company Number: ES-ROCHE-1416333

PATIENT
  Age: 33 Year
  Sex: Male
  Weight: 71 kg

DRUGS (1)
  1. TAMIFLU [Suspect]
     Indication: INFLUENZA
     Dosage: 30 MG CAPSULAS DURAS, 10 CAPSULAS?LAST DOSE PRIOR TO SERIOUS ADVERSE EVENT: 14/MAR/2014
     Route: 065
     Dates: start: 20140304

REACTIONS (4)
  - Chest discomfort [Recovered/Resolved with Sequelae]
  - Cough [Recovered/Resolved with Sequelae]
  - Sputum retention [Not Recovered/Not Resolved]
  - Fatigue [Not Recovered/Not Resolved]
